FAERS Safety Report 8100921-2 (Version None)
Quarter: 2012Q1

REPORT INFORMATION
  Report Type: 
  Country: None (occurrence: None)
  Receive Date: 20120129
  Receipt Date: 20110908
  Transmission Date: 20120608
  Serious: No
  Sender: FDA-Public Use
  Company Number: US-ABBOTT-11P-163-0853373-00

PATIENT
  Weight: 80.358 kg

DRUGS (3)
  1. HUMIRA [Suspect]
     Indication: RHEUMATOID ARTHRITIS
     Dates: start: 20110601
  2. INDOMETHACIN [Concomitant]
     Indication: RHEUMATOID ARTHRITIS
  3. ESTROGENIC SUBSTANCE [Concomitant]
     Indication: HORMONE REPLACEMENT THERAPY

REACTIONS (6)
  - MUSCULAR WEAKNESS [None]
  - INJECTION SITE ERYTHEMA [None]
  - INJECTION SITE WARMTH [None]
  - MUSCULOSKELETAL PAIN [None]
  - INJECTION SITE NODULE [None]
  - ARTHRALGIA [None]
